FAERS Safety Report 17719160 (Version 3)
Quarter: 2020Q3

REPORT INFORMATION
  Report Type: Report from Study
  Country: PA (occurrence: PA)
  Receive Date: 20200428
  Receipt Date: 20200727
  Transmission Date: 20201102
  Serious: Yes (Other)
  Sender: FDA-Public Use
  Company Number: NVSC2020PA085321

PATIENT
  Sex: Female
  Weight: 160 kg

DRUGS (4)
  1. PLAQUINOL [Concomitant]
     Active Substance: HYDROXYCHLOROQUINE SULFATE
     Indication: PRODUCT USED FOR UNKNOWN INDICATION
     Dosage: UNK
     Route: 065
  2. RITUXIMAB. [Suspect]
     Active Substance: RITUXIMAB
     Indication: PLATELET COUNT DECREASED
     Dosage: UNK
     Route: 065
     Dates: start: 201902
  3. REVOLADE [Suspect]
     Active Substance: ELTROMBOPAG
     Indication: IMMUNE THROMBOCYTOPENIA
     Dosage: 25 MG, UNKNOWN
     Route: 065
  4. PREDNISONE. [Suspect]
     Active Substance: PREDNISONE
     Indication: PLATELET COUNT DECREASED
     Dosage: 10 MG
     Route: 065
     Dates: start: 201902

REACTIONS (17)
  - Ageusia [Unknown]
  - Headache [Unknown]
  - Dyspnoea [Unknown]
  - Nervousness [Recovering/Resolving]
  - Malaise [Unknown]
  - Bone pain [Recovering/Resolving]
  - Anosmia [Unknown]
  - Stress [Recovering/Resolving]
  - Decreased appetite [Unknown]
  - Thermal burn [Unknown]
  - Weight increased [Unknown]
  - Nasal congestion [Unknown]
  - Pain [Unknown]
  - Nasopharyngitis [Recovering/Resolving]
  - Platelet count decreased [Unknown]
  - Anxiety [Unknown]
  - Insomnia [Recovering/Resolving]
